FAERS Safety Report 9720085 (Version 1)
Quarter: 2013Q4

REPORT INFORMATION
  Report Type: Spontaneous
  Country: US (occurrence: US)
  Receive Date: 20131128
  Receipt Date: 20131128
  Transmission Date: 20140711
  Serious: Yes (Hospitalization)
  Sender: FDA-Public Use
  Company Number: US-009507513-1311USA007784

PATIENT
  Age: 48 Year
  Sex: Female

DRUGS (6)
  1. METHYLPREDNISOLONE SODIUM SUCCINATE [Suspect]
     Indication: BLINDNESS
     Dosage: 1000 MG, QD
     Route: 042
  2. METHYLPREDNISOLONE SODIUM SUCCINATE [Suspect]
     Dosage: 1000 MG, QD
     Route: 042
  3. METHYLPREDNISOLONE SODIUM SUCCINATE [Suspect]
     Dosage: 2000 MG, QD
     Route: 042
  4. VALSARTAN [Concomitant]
  5. ASPIRIN [Concomitant]
  6. ESOMEPRAZOLE [Concomitant]

REACTIONS (5)
  - Visual acuity reduced [Recovering/Resolving]
  - Diabetes mellitus [Unknown]
  - Acne [Unknown]
  - Cushingoid [Unknown]
  - Drug ineffective [Unknown]
